FAERS Safety Report 14090906 (Version 3)
Quarter: 2017Q4

REPORT INFORMATION
  Report Type: Spontaneous
  Country: IT (occurrence: IT)
  Receive Date: 20171015
  Receipt Date: 20171103
  Transmission Date: 20180321
  Serious: Yes (Other)
  Sender: FDA-Public Use
  Company Number: IT-BRISTOL-MYERS SQUIBB COMPANY-BMS-2017-091712

PATIENT
  Age: 20 Year
  Sex: Male

DRUGS (4)
  1. TOPAMAX [Suspect]
     Active Substance: TOPIRAMATE
     Indication: INTENTIONAL SELF-INJURY
     Dosage: 7 DF, (TOTAL)
     Route: 048
     Dates: start: 20170920, end: 20170920
  2. MELATONIN [Suspect]
     Active Substance: MELATONIN
     Indication: INTENTIONAL SELF-INJURY
     Dosage: UNK
     Route: 065
     Dates: start: 20170920, end: 20170920
  3. XANAX [Suspect]
     Active Substance: ALPRAZOLAM
     Indication: INTENTIONAL SELF-INJURY
     Dosage: 7 DF,  (TOTAL)
     Route: 048
     Dates: start: 20170920, end: 20170920
  4. ARIPIPRAZOLE. [Suspect]
     Active Substance: ARIPIPRAZOLE
     Indication: INTENTIONAL SELF-INJURY
     Dosage: 7 DF, (TOTAL)
     Route: 048
     Dates: start: 20170920, end: 20170920

REACTIONS (4)
  - Product use in unapproved indication [Unknown]
  - Sopor [Unknown]
  - Overdose [Unknown]
  - Drug abuse [Unknown]

NARRATIVE: CASE EVENT DATE: 20170920
